FAERS Safety Report 7291927-4 (Version None)
Quarter: 2011Q1

REPORT INFORMATION
  Report Type: 
  Country: None (occurrence: None)
  Receive Date: 20110214
  Receipt Date: 20110204
  Transmission Date: 20110831
  Serious: Yes (Hospitalization, Other)
  Sender: FDA-Public Use
  Company Number: CZ-ABBOTT-11P-217-0701110-00

PATIENT
  Sex: Female
  Weight: 62 kg

DRUGS (15)
  1. EUTHYROX [Concomitant]
     Indication: PRODUCT USED FOR UNKNOWN INDICATION
     Route: 048
  2. TENAXUM [Concomitant]
     Indication: PRODUCT USED FOR UNKNOWN INDICATION
  3. FURON [Concomitant]
     Indication: PRODUCT USED FOR UNKNOWN INDICATION
  4. CITALEC [Concomitant]
     Indication: PRODUCT USED FOR UNKNOWN INDICATION
  5. LANTUS [Concomitant]
     Indication: PRODUCT USED FOR UNKNOWN INDICATION
  6. ATRIAL NATRIURETIC PEPTIDE [Concomitant]
     Indication: PRODUCT USED FOR UNKNOWN INDICATION
  7. VASOCARDIN [Concomitant]
     Indication: PRODUCT USED FOR UNKNOWN INDICATION
  8. ANOPYRIN [Concomitant]
     Indication: PRODUCT USED FOR UNKNOWN INDICATION
  9. ORCAL [Concomitant]
     Indication: PRODUCT USED FOR UNKNOWN INDICATION
  10. HUMALOG [Concomitant]
     Indication: PRODUCT USED FOR UNKNOWN INDICATION
     Dosage: 14U IN MORNING, 10U AT NOON, 6U IN EVENING
  11. ZEMPLAR [Suspect]
     Indication: HYPERPARATHYROIDISM SECONDARY
     Route: 048
     Dates: start: 20101203, end: 20110104
  12. TULIP [Concomitant]
     Indication: PRODUCT USED FOR UNKNOWN INDICATION
  13. INSULIN [Concomitant]
     Indication: TYPE 1 DIABETES MELLITUS
     Dates: start: 19800101
  14. HORMONAL SUBSITITUTION [Concomitant]
     Indication: THYROID DISORDER
  15. AMLODIPINE BESYLATE [Concomitant]
     Indication: PRODUCT USED FOR UNKNOWN INDICATION

REACTIONS (19)
  - DEHYDRATION [None]
  - SYNCOPE [None]
  - BALANCE DISORDER [None]
  - ELECTROLYTE IMBALANCE [None]
  - CEREBELLAR ATROPHY [None]
  - DIABETES MELLITUS INADEQUATE CONTROL [None]
  - TREATMENT NONCOMPLIANCE [None]
  - FALL [None]
  - MENTAL IMPAIRMENT [None]
  - DEMENTIA [None]
  - LUMBAR VERTEBRAL FRACTURE [None]
  - BACK PAIN [None]
  - ORTHOSTATIC HYPOTENSION [None]
  - ARTERIOSCLEROSIS [None]
  - AMNESIA [None]
  - HYPERTENSION [None]
  - VASCULAR ENCEPHALOPATHY [None]
  - PETIT MAL EPILEPSY [None]
  - SPINAL COMPRESSION FRACTURE [None]
